FAERS Safety Report 23260863 (Version 1)
Quarter: 2023Q4

REPORT INFORMATION
  Report Type: Spontaneous
  Country: US (occurrence: US)
  Receive Date: 20231205
  Receipt Date: 20231205
  Transmission Date: 20240110
  Serious: No
  Sender: FDA-Public Use
  Company Number: US-CELLTRION INC.-2023US012826

PATIENT

DRUGS (4)
  1. TRUXIMA [Suspect]
     Active Substance: RITUXIMAB-ABBS
     Indication: B-cell small lymphocytic lymphoma
     Dosage: 739 MG, EVERY 7 DAYS
     Dates: start: 20230310
  2. TRUXIMA [Suspect]
     Active Substance: RITUXIMAB-ABBS
     Dosage: 739 MG, EVERY 7 DAYS
     Dates: start: 20230317
  3. TRUXIMA [Suspect]
     Active Substance: RITUXIMAB-ABBS
     Dosage: 739 MG, EVERY 7 DAYS
     Dates: start: 20230324
  4. TRUXIMA [Suspect]
     Active Substance: RITUXIMAB-ABBS
     Dosage: 739 MG, EVERY 7 DAYS
     Dates: start: 20230407

REACTIONS (1)
  - Drug ineffective [Unknown]
